FAERS Safety Report 5120589-7 (Version None)
Quarter: 2006Q4

REPORT INFORMATION
  Report Type: 
  Country: None (occurrence: None)
  Receive Date: 20061004
  Receipt Date: 20050909
  Transmission Date: 20070319
  Serious: Yes (Other)
  Sender: FDA-Public Use
  Company Number: 2005UW13511

PATIENT
  Age: 41 Year
  Sex: Female
  Weight: 89 kg

DRUGS (9)
  1. TAMOXIFEN CITRATE [Suspect]
     Indication: BREAST CANCER
     Route: 048
     Dates: start: 20030609, end: 20040401
  2. ARIMIDEX [Interacting]
     Indication: BREAST CANCER
     Route: 048
     Dates: start: 20040501
  3. ARIMIDEX [Interacting]
     Route: 048
     Dates: start: 20060220
  4. GARDENAL [Interacting]
     Indication: CONVULSION
     Route: 048
     Dates: start: 19790101
  5. DIAZEPAM [Concomitant]
     Indication: NERVOUSNESS
     Route: 048
  6. DIAZEPAM [Concomitant]
     Indication: HALLUCINATION
     Route: 048
  7. HALDOL SOLUTAB [Concomitant]
     Indication: NERVOUSNESS
     Route: 048
  8. NIOFLUXETIN [Concomitant]
     Indication: NERVOUSNESS
     Route: 048
  9. GARDENAL [Concomitant]
     Route: 048
     Dates: start: 19790101

REACTIONS (12)
  - ABDOMINAL PAIN [None]
  - ANAL HAEMORRHAGE [None]
  - CONSTIPATION [None]
  - DISEASE PROGRESSION [None]
  - DIZZINESS [None]
  - DRUG INTERACTION [None]
  - MUSCULAR WEAKNESS [None]
  - MUSCULOSKELETAL STIFFNESS [None]
  - RASH [None]
  - RENAL FAILURE [None]
  - TACHYCARDIA [None]
  - THROAT TIGHTNESS [None]
